FAERS Safety Report 4602966-3 (Version None)
Quarter: 2005Q1

REPORT INFORMATION
  Report Type: 
  Country: None (occurrence: None)
  Receive Date: 20050307
  Receipt Date: 20050221
  Transmission Date: 20050727
  Serious: Yes (Disabling)
  Sender: FDA-Public Use
  Company Number: 2005SE01055

PATIENT
  Age: 51 Year
  Sex: Male

DRUGS (1)
  1. ROSUVASTATINE [Suspect]
     Indication: HYPERCHOLESTEROLAEMIA
     Dosage: 20 MG DAILY PO
     Route: 048
     Dates: start: 20040901, end: 20041030

REACTIONS (2)
  - DYSGEUSIA [None]
  - PAROSMIA [None]
